FAERS Safety Report 5922206-2 (Version None)
Quarter: 2008Q4

REPORT INFORMATION
  Report Type: 
  Country: None (occurrence: None)
  Receive Date: 20081017
  Receipt Date: 20081010
  Transmission Date: 20090506
  Serious: Yes (Hospitalization)
  Sender: FDA-Public Use
  Company Number: DE-JNJFOC-20081002001

PATIENT
  Age: 52 Year
  Sex: Male
  Weight: 83 kg

DRUGS (8)
  1. PALIPERIDONE [Suspect]
     Route: 048
  2. PALIPERIDONE [Suspect]
     Route: 048
  3. PALIPERIDONE [Suspect]
     Indication: SCHIZOPHRENIA, PARANOID TYPE
     Route: 048
  4. MELPERON [Concomitant]
     Indication: RESTLESSNESS
     Route: 048
  5. MIRTAZAPINE [Concomitant]
     Indication: INSOMNIA
     Route: 048
  6. LORAZEPAM [Concomitant]
     Route: 048
  7. LORAZEPAM [Concomitant]
     Route: 048
  8. TRIMIPRAMINE MALEATE [Concomitant]
     Indication: INSOMNIA
     Route: 048

REACTIONS (1)
  - DEPRESSION [None]
